FAERS Safety Report 4600333-X (Version None)
Quarter: 2005Q1

REPORT INFORMATION
  Report Type: 
  Country: None (occurrence: None)
  Receive Date: 20050303
  Receipt Date: 20050210
  Transmission Date: 20050727
  Serious: Yes (Hospitalization)
  Sender: FDA-Public Use
  Company Number: USA050290569

PATIENT
  Age: 52 Year
  Sex: Female

DRUGS (1)
  1. HUMULIN R [Suspect]

REACTIONS (4)
  - BLOOD GLUCOSE INCREASED [None]
  - DIABETES MELLITUS INADEQUATE CONTROL [None]
  - INFLUENZA [None]
  - VOMITING [None]
